FAERS Safety Report 7347108-9 (Version None)
Quarter: 2011Q1

REPORT INFORMATION
  Report Type: 
  Country: None (occurrence: None)
  Receive Date: 20110311
  Receipt Date: 20110211
  Transmission Date: 20110831
  Serious: No
  Sender: FDA-Public Use
  Company Number: US-B.I. PHARMACEUTICALS,INC./RIDGEFIELD-2011-BP-04598BP

PATIENT
  Sex: Female

DRUGS (3)
  1. AVALIDE [Concomitant]
     Indication: CARDIAC DISORDER
  2. TOPROL-XL [Concomitant]
  3. PRADAXA [Suspect]
     Dosage: 300 MG
     Route: 048
     Dates: start: 20110101

REACTIONS (3)
  - BRONCHITIS [None]
  - COUGH [None]
  - DYSPEPSIA [None]
